FAERS Safety Report 6237592-6 (Version None)
Quarter: 2009Q2

REPORT INFORMATION
  Report Type: 
  Country: None (occurrence: None)
  Receive Date: 20090617
  Receipt Date: 20090602
  Transmission Date: 20091009
  Serious: Yes (Death, Hospitalization)
  Sender: FDA-Public Use
  Company Number: 000934

PATIENT
  Age: 49 Year
  Sex: Female

DRUGS (7)
  1. ALPRAZOLAM [Suspect]
     Dosage: 1 MG QID, ORAL; 3.5 MG QD, ORAL;0.5 MG 1X/3 DAYS, ORAL;0.5 MG BID, ORAL
     Route: 048
  2. IMIPRAMINE [Concomitant]
  3. CONJUGATED ESTROGENS [Concomitant]
  4. METOPROLOL SUCCINATE [Concomitant]
  5. HYDROCHLOROTHIAZIDE [Concomitant]
  6. TRIAMTERENE [Concomitant]
  7. POTASSIUM CHLORIDE [Concomitant]

REACTIONS (27)
  - AGITATION [None]
  - AORTIC ARTERIOSCLEROSIS [None]
  - ARTERIOSCLEROSIS CORONARY ARTERY [None]
  - ATRIOVENTRICULAR BLOCK SECOND DEGREE [None]
  - BLOOD PRESSURE IMMEASURABLE [None]
  - BLOOD PRESSURE INCREASED [None]
  - BODY TEMPERATURE INCREASED [None]
  - CEREBRAL ATROPHY [None]
  - CEREBRAL DISORDER [None]
  - DELUSION [None]
  - DILATATION ATRIAL [None]
  - DRUG SCREEN POSITIVE [None]
  - DRUG WITHDRAWAL CONVULSIONS [None]
  - ELECTROCARDIOGRAM ST-T CHANGE [None]
  - GRAND MAL CONVULSION [None]
  - HALLUCINATIONS, MIXED [None]
  - LABORATORY TEST ABNORMAL [None]
  - MOOD ALTERED [None]
  - PLATELET COUNT INCREASED [None]
  - POOR QUALITY SLEEP [None]
  - PSYCHOTIC DISORDER [None]
  - RESTLESSNESS [None]
  - SINUS ARREST [None]
  - SINUS TACHYCARDIA [None]
  - UNRESPONSIVE TO STIMULI [None]
  - VENTRICULAR FIBRILLATION [None]
  - WHITE BLOOD CELL COUNT INCREASED [None]
